FAERS Safety Report 8879323 (Version 4)
Quarter: 2013Q3

REPORT INFORMATION
  Report Type: Spontaneous
  Country: US (occurrence: US)
  Receive Date: 20121101
  Receipt Date: 20130822
  Transmission Date: 20140515
  Serious: Yes (Other)
  Sender: FDA-Public Use
  Company Number: US-BIOGENIDEC-2012BI049314

PATIENT
  Age: 49 Year
  Sex: Female

DRUGS (3)
  1. AVONEX [Suspect]
     Indication: MULTIPLE SCLEROSIS
     Route: 030
     Dates: start: 19990412
  2. AVONEX [Suspect]
     Indication: MULTIPLE SCLEROSIS
     Route: 030
     Dates: start: 20050915, end: 20130325
  3. AVONEX [Suspect]
     Indication: MULTIPLE SCLEROSIS
     Route: 030
     Dates: start: 20130326

REACTIONS (7)
  - Thrombosis [Not Recovered/Not Resolved]
  - International normalised ratio increased [Unknown]
  - Mobility decreased [Unknown]
  - Abasia [Unknown]
  - Pain [Unknown]
  - Arthralgia [Unknown]
  - Influenza like illness [Unknown]
